FAERS Safety Report 16172398 (Version 3)
Quarter: 2019Q3

REPORT INFORMATION
  Report Type: Spontaneous
  Country: JP (occurrence: JP)
  Receive Date: 20190409
  Receipt Date: 20190717
  Transmission Date: 20191004
  Serious: Yes (Death, Disabling, Other)
  Sender: FDA-Public Use
  Company Number: JP-BRISTOL-MYERS SQUIBB COMPANY-BMS-2018-121842

PATIENT
  Age: 60 Year
  Sex: Female
  Weight: 50.9 kg

DRUGS (10)
  1. FUROSEMIDE. [Concomitant]
     Active Substance: FUROSEMIDE
     Indication: PRODUCT USED FOR UNKNOWN INDICATION
     Dosage: 10 MILLIGRAM, QD
     Route: 065
     Dates: end: 20190119
  2. BISONO [Concomitant]
     Active Substance: BISOPROLOL
     Indication: SUPRAVENTRICULAR TACHYCARDIA
     Dosage: 2 MILLIGRAM, QD
     Route: 062
     Dates: start: 20181127, end: 20190118
  3. ACELIO [Concomitant]
     Active Substance: ACETAMINOPHEN
     Indication: PYREXIA
     Dosage: 500 MILLIGRAM, QD OR BID
     Route: 041
     Dates: end: 20181222
  4. FLAGYL [Concomitant]
     Active Substance: METRONIDAZOLE\METRONIDAZOLE HYDROCHLORIDE
     Indication: CLOSTRIDIUM DIFFICILE COLITIS
     Dosage: 250 MILLIGRAM, Q6H
     Route: 048
     Dates: start: 20181113, end: 20190118
  5. OPDIVO [Suspect]
     Active Substance: NIVOLUMAB
     Indication: GASTRIC CANCER
     Dosage: 240 MILLIGRAM, Q2WK
     Route: 041
     Dates: start: 20181114, end: 20181128
  6. ALPRAZOLAM 1 A PHARMA [Concomitant]
     Indication: ANXIETY
     Dosage: 0.4 MILLIGRAM, Q12H
     Route: 048
     Dates: end: 20190118
  7. VICCILLIN                          /00000502/ [Suspect]
     Active Substance: AMPICILLIN SODIUM
     Indication: URINARY TRACT INFECTION
     Dosage: 1 GRAM, Q12H
     Route: 041
     Dates: start: 20181207, end: 20181209
  8. REBAMIPIDE [Concomitant]
     Active Substance: REBAMIPIDE
     Indication: GASTROINTESTINAL DISORDER PROPHYLAXIS
     Dosage: 100 MILLIGRAM, Q8H
     Route: 048
     Dates: end: 20190118
  9. NAIXAN                             /00256201/ [Concomitant]
     Active Substance: NAPROXEN
     Indication: PYREXIA
     Dosage: 200 MILLIGRAM, Q8H
     Route: 048
     Dates: start: 20180825, end: 20190118
  10. TAKECAB [Concomitant]
     Active Substance: VONOPRAZAN FUMURATE
     Indication: GASTRIC ULCER HAEMORRHAGE
     Dosage: 10 MILLIGRAM, EVERYDAY
     Route: 048
     Dates: start: 20181127, end: 20190118

REACTIONS (4)
  - Gastric ulcer haemorrhage [Unknown]
  - Toxic epidermal necrolysis [Recovering/Resolving]
  - Urinary tract infection [Unknown]
  - Malignant neoplasm progression [Fatal]

NARRATIVE: CASE EVENT DATE: 20181207
